FAERS Safety Report 9433511 (Version 2)
Quarter: 2013Q4

REPORT INFORMATION
  Report Type: Spontaneous
  Country: FR (occurrence: FR)
  Receive Date: 20130731
  Receipt Date: 20131216
  Transmission Date: 20140711
  Serious: Yes (Hospitalization, Other)
  Sender: FDA-Public Use
  Company Number: FR-ACTAVIS-2013-12967

PATIENT
  Age: 17 Year
  Sex: Female

DRUGS (3)
  1. PARACETAMOL (UNKNOWN) [Suspect]
     Indication: PRODUCT USED FOR UNKNOWN INDICATION
     Dosage: 156 MG/KG, SINGLE, DOSE GREATER THAN 10 MG
     Route: 065
  2. ALPRAZOLAM [Concomitant]
     Indication: PRODUCT USED FOR UNKNOWN INDICATION
     Dosage: UNK
     Route: 065
  3. CEFPODOXIME [Concomitant]
     Indication: PRODUCT USED FOR UNKNOWN INDICATION
     Dosage: UNK
     Route: 065

REACTIONS (3)
  - Renal failure acute [Recovered/Resolved]
  - Hepatic failure [Recovered/Resolved]
  - Intentional overdose [Unknown]
